FAERS Safety Report 6124523-2 (Version None)
Quarter: 2009Q1

REPORT INFORMATION
  Report Type: 
  Country: None (occurrence: None)
  Receive Date: 20090317
  Receipt Date: 20090317
  Transmission Date: 20090719
  Serious: Yes (Other)
  Sender: FDA-Public Use
  Company Number: None

PATIENT
  Sex: Female
  Weight: 49.8957 kg

DRUGS (1)
  1. METHADONE HCL [Suspect]
     Indication: PAIN
     Dosage: 3TIMES A DAY

REACTIONS (6)
  - ANXIETY [None]
  - CONSTIPATION [None]
  - DYSPNOEA [None]
  - MOOD SWINGS [None]
  - PRURITUS [None]
  - SOMNAMBULISM [None]
